FAERS Safety Report 10038719 (Version 1)
Quarter: 2014Q1

REPORT INFORMATION
  Report Type: Spontaneous
  Country: US (occurrence: None)
  Receive Date: 20140306
  Receipt Date: 20140306
  Transmission Date: 20141002
  Serious: Yes (Other)
  Sender: FDA-Public Use
  Company Number: 163-21880-13011464

PATIENT
  Age: 70 Year
  Sex: Female
  Weight: 177 kg

DRUGS (2)
  1. REVLIMID (LENALIDOMIDE) (25 MILLIGRAM, CAPSULES) [Suspect]
     Indication: PLASMA CELL MYELOMA
     Route: 048
     Dates: start: 201211
  2. ARANESP (DARBEPOETIN ALFA [Concomitant]

REACTIONS (8)
  - Skin discolouration [None]
  - Platelet count decreased [None]
  - Pollakiuria [None]
  - Rash [None]
  - Dry skin [None]
  - Dry mouth [None]
  - Urine analysis abnormal [None]
  - Gastrointestinal pain [None]
